FAERS Safety Report 8379708-1 (Version None)
Quarter: 2012Q2

REPORT INFORMATION
  Report Type: 
  Country: None (occurrence: None)
  Receive Date: 20120523
  Receipt Date: 20120510
  Transmission Date: 20120825
  Serious: Yes (Other)
  Sender: FDA-Public Use
  Company Number: US-JNJFOC-20120510541

PATIENT
  Sex: Female
  Weight: 67.13 kg

DRUGS (4)
  1. ORTHO TRI-CYCLEN LO [Suspect]
     Indication: CONTRACEPTION
     Route: 048
     Dates: end: 20110101
  2. SYNTHROID [Concomitant]
     Indication: THYROID DISORDER
     Route: 065
  3. ORTHO TRI-CYCLEN LO [Suspect]
     Route: 048
     Dates: start: 20120101
  4. ORTHO TRI-CYCLEN [Suspect]
     Indication: CONTRACEPTION
     Route: 048
     Dates: start: 20110101, end: 20120101

REACTIONS (7)
  - DEPRESSION [None]
  - OVARIAN CYST [None]
  - IRRITABILITY [None]
  - DRUG DOSE OMISSION [None]
  - METRORRHAGIA [None]
  - ANXIETY [None]
  - SWELLING [None]
